FAERS Safety Report 12393261 (Version 1)
Quarter: 2016Q2

REPORT INFORMATION
  Report Type: Spontaneous
  Country: US (occurrence: US)
  Receive Date: 20160523
  Receipt Date: 20160523
  Transmission Date: 20160815
  Serious: Yes (Other)
  Sender: FDA-Public Use
  Company Number: US-AMGEN-USASP2016063071

PATIENT
  Age: 66 Year
  Sex: Female

DRUGS (4)
  1. BLINCYTO [Suspect]
     Active Substance: BLINATUMOMAB
     Indication: ACUTE LYMPHOCYTIC LEUKAEMIA
     Dosage: 9 MUG, QD
     Route: 065
     Dates: start: 20160206
  2. DECADRON [Concomitant]
     Active Substance: DEXAMETHASONE
     Dosage: 8 MG, BID
  3. PONATINIB [Concomitant]
     Active Substance: PONATINIB
     Dosage: 45 MG, QD
     Dates: start: 20160303
  4. CYCLOPHOSPHAMIDE W/DOXORUBICIN/VINCRISTINE [Concomitant]
     Dosage: UNK
     Dates: start: 20160328

REACTIONS (6)
  - Hyperglycaemia [Unknown]
  - Acute lymphocytic leukaemia recurrent [Unknown]
  - Mental status changes [Unknown]
  - Disease progression [Unknown]
  - Drug intolerance [Unknown]
  - Pyrexia [Unknown]

NARRATIVE: CASE EVENT DATE: 20160206
